FAERS Safety Report 19511268 (Version 3)
Quarter: 2021Q3

REPORT INFORMATION
  Report Type: Spontaneous
  Country: FR (occurrence: FR)
  Receive Date: 20210709
  Receipt Date: 20210923
  Transmission Date: 20211014
  Serious: Yes (Other)
  Sender: FDA-Public Use
  Company Number: FR-AUROBINDO-AUR-APL-2021-027738

PATIENT
  Age: 75 Year
  Sex: Female
  Weight: 93 kg

DRUGS (9)
  1. INEXIUM [Concomitant]
     Active Substance: ESOMEPRAZOLE
     Indication: PRODUCT USED FOR UNKNOWN INDICATION
     Dosage: 20 MILLIGRAM, UNK
     Route: 065
  2. SALBUTAMOL [Suspect]
     Active Substance: ALBUTEROL
     Dosage: 6 MILLIGRAM, ONCE A DAY(2 MG, TID (2 MG MORNING, NOON, EVENING)
     Route: 065
     Dates: start: 201803, end: 20201006
  3. SALBUTAMOL [Suspect]
     Active Substance: ALBUTEROL
     Indication: CONGENITAL MYASTHENIC SYNDROME
     Dosage: 6 MILLIGRAM, ONCE A DAY (2 MG, TID (2 MG MORNING, NOON, EVENING)
     Route: 065
     Dates: start: 20190129, end: 20201006
  4. SALBUTAMOL [Suspect]
     Active Substance: ALBUTEROL
     Dosage: 6 MILLIGRAM, ONCE A DAY 2 MG, TID (2 MG MORNING, NOON, EVENING)
     Route: 065
     Dates: start: 20210323
  5. COAPROVEL [Suspect]
     Active Substance: HYDROCHLOROTHIAZIDE\IRBESARTAN
     Indication: HYPERTENSION
     Dosage: 150 MILLIGRAM, ONCE A DAY(150 MG, QD )
     Route: 065
     Dates: start: 201712
  6. LEVOTHYROX [Concomitant]
     Active Substance: LEVOTHYROXINE
     Indication: PRODUCT USED FOR UNKNOWN INDICATION
     Dosage: 12.5 MICROGRAM, UNK
     Route: 065
  7. SALBUTAMOL [Suspect]
     Active Substance: ALBUTEROL
     Dosage: 6 MILLIGRAM, ONCE A DAY(2 MG, TID (2 MG MORNING, NOON, EVENING)
     Route: 065
     Dates: start: 20210525
  8. PANTOPRAZOLE [Suspect]
     Active Substance: PANTOPRAZOLE
     Indication: GASTRITIS
     Dosage: 20 MILLIGRAM, ONCE A DAY(20 MG, QD (EVENING)
     Route: 048
     Dates: start: 201712
  9. PANTOPRAZOLE [Suspect]
     Active Substance: PANTOPRAZOLE
     Indication: HIATUS HERNIA
     Dosage: 20 MILLIGRAM, ONCE A DAY (20 MG, QD (EVENING))
     Route: 048
     Dates: start: 2010

REACTIONS (5)
  - Chest pain [Recovering/Resolving]
  - Palpitations [Recovering/Resolving]
  - Atrial fibrillation [Recovered/Resolved]
  - Left atrial dilatation [Not Recovered/Not Resolved]
  - Arrhythmia [Recovering/Resolving]

NARRATIVE: CASE EVENT DATE: 20201006
